FAERS Safety Report 23332644 (Version 1)
Quarter: 2023Q4

REPORT INFORMATION
  Report Type: Spontaneous
  Country: US (occurrence: None)
  Receive Date: 20231222
  Receipt Date: 20231222
  Transmission Date: 20240110
  Serious: Yes (Hospitalization)
  Sender: FDA-Public Use
  Company Number: None

PATIENT
  Age: 71 Year
  Sex: Female
  Weight: 63.9 kg

DRUGS (11)
  1. LECANEMAB [Suspect]
     Active Substance: LECANEMAB
     Indication: Dementia Alzheimer^s type
     Dosage: OTHER FREQUENCY : EVERY OTHER WEEK;?
     Route: 042
     Dates: start: 20231219, end: 20231219
  2. vitamin D3 2,000 IU [Concomitant]
  3. CYANOCOBALAMIN [Concomitant]
     Active Substance: CYANOCOBALAMIN
  4. DONEPEZIL [Concomitant]
     Active Substance: DONEPEZIL
  5. folic acid 1 mg [Concomitant]
  6. LISINOPRIL [Concomitant]
     Active Substance: LISINOPRIL
  7. RALOXIFENE [Concomitant]
     Active Substance: RALOXIFENE
  8. ROSUVASTATIN [Concomitant]
     Active Substance: ROSUVASTATIN
  9. ASPIRIN [Concomitant]
     Active Substance: ASPIRIN
  10. magnesium 200 mg [Concomitant]
  11. dulcolax [Concomitant]

REACTIONS (9)
  - Dizziness [None]
  - Nausea [None]
  - Unresponsive to stimuli [None]
  - Circulatory collapse [None]
  - Eye disorder [None]
  - Hypotension [None]
  - Blood glucose decreased [None]
  - Pallor [None]
  - Hyperhidrosis [None]

NARRATIVE: CASE EVENT DATE: 20231219
